FAERS Safety Report 5850601-9 (Version None)
Quarter: 2008Q3

REPORT INFORMATION
  Report Type: 
  Country: None (occurrence: None)
  Receive Date: 20080820
  Receipt Date: 20080811
  Transmission Date: 20090109
  Serious: Yes (Other)
  Sender: FDA-Public Use
  Company Number: JP-JNJFOC-20061105906

PATIENT
  Age: 6 Decade
  Sex: Male

DRUGS (16)
  1. RISPERDAL [Suspect]
     Route: 048
  2. RISPERDAL [Suspect]
     Indication: DRUG USE FOR UNKNOWN INDICATION
     Route: 048
  3. RISPERDAL [Suspect]
     Dosage: 0.5-2MG
     Route: 048
  4. RISPERDAL [Suspect]
     Route: 048
  5. LENDORMIN [Concomitant]
     Indication: DRUG USE FOR UNKNOWN INDICATION
     Route: 048
  6. DEPAS [Concomitant]
     Indication: DRUG USE FOR UNKNOWN INDICATION
     Route: 048
  7. ROHYPNOL [Concomitant]
     Indication: DRUG USE FOR UNKNOWN INDICATION
     Route: 048
  8. DIAZEPAM [Concomitant]
     Indication: DRUG USE FOR UNKNOWN INDICATION
     Route: 048
  9. AKINETON [Concomitant]
  10. VEGETAMIN-A [Concomitant]
  11. GOODMIN [Concomitant]
  12. SENNOSIDE [Concomitant]
     Route: 065
  13. LOPEMIN [Concomitant]
     Route: 048
  14. SAIREI-TO [Concomitant]
  15. DOMPERIDONE [Concomitant]
  16. CLOXAZOLAM [Concomitant]
     Route: 048

REACTIONS (15)
  - BLOOD GLUCOSE INCREASED [None]
  - CONSTIPATION [None]
  - DIARRHOEA [None]
  - DIZZINESS [None]
  - DYSPEPSIA [None]
  - HUNGER [None]
  - HYPERHIDROSIS [None]
  - INSOMNIA [None]
  - NAUSEA [None]
  - PARKINSONISM [None]
  - PERIARTHRITIS [None]
  - SOMNOLENCE [None]
  - SUICIDAL IDEATION [None]
  - THIRST [None]
  - VOMITING [None]
